FAERS Safety Report 20024058 (Version 2)
Quarter: 2023Q2

REPORT INFORMATION
  Report Type: Spontaneous
  Country: DE (occurrence: DE)
  Receive Date: 20211102
  Receipt Date: 20230419
  Transmission Date: 20230722
  Serious: Yes (Hospitalization, Other)
  Sender: FDA-Public Use
  Company Number: DE-ADRED-06773-01

PATIENT
  Age: 61 Year
  Sex: Male
  Weight: 85 kg

DRUGS (16)
  1. EPLERENONE [Suspect]
     Active Substance: EPLERENONE
     Indication: Product used for unknown indication
     Dosage: 50 MILLIGRAM, QD, (1-0-0-0, TABLETS)
     Route: 048
  2. TORSEMIDE [Suspect]
     Active Substance: TORSEMIDE
     Indication: Product used for unknown indication
     Dosage: 10 MILLIGRAM, QD, (0.5-0-0-0, TABLETS)
     Route: 048
  3. XIPAMIDE [Suspect]
     Active Substance: XIPAMIDE
     Indication: Product used for unknown indication
     Dosage: 20 MILLIGRAM, QD, (1-0-0-0, TABLETS)
     Route: 048
  4. ASPIRIN [Concomitant]
     Active Substance: ASPIRIN
     Dosage: 100 MILLIGRAM, QD, (1-0-0-0, TABLETS)
     Route: 048
  5. Kalinor [Concomitant]
     Dosage: 1 DOSAGE FORM, QD, (2500/1565.66 MG, 1-0-0-0,
     Route: 048
  6. Kalinor [Concomitant]
     Dosage: 2.057|2|2.17 G, 1-0-0-0, EFFERVESCENT TABLET
     Route: 048
  7. LORAZEPAM [Concomitant]
     Active Substance: LORAZEPAM
     Dosage: 2.5 MG, MAXIMUM TWO TABLETS PER DAY, IF REQUIRED
     Route: 060
  8. PROPRANOLOL [Concomitant]
     Active Substance: PROPRANOLOL HYDROCHLORIDE
     Dosage: 10 MILLIGRAM, BID, 12 HOURS, (1-0-1-0, TABLETS)
     Route: 048
  9. ORNITHINE ASPARTATE [Concomitant]
     Active Substance: ORNITHINE ASPARTATE
     Dosage: 3 GRAM, QD, (1-0-0-0, GRANULES)
     Route: 048
  10. NALOXONE HYDROCHLORIDE\OXYCODONE HYDROCHLORIDE [Concomitant]
     Active Substance: NALOXONE HYDROCHLORIDE\OXYCODONE HYDROCHLORIDE
     Dosage: 5|10 MG, MAX [PRESUMABLY?MAXIMUM?] TWO TABLETSPER
     Route: 048
  11. PANTOPRAZOLE SODIUM [Concomitant]
     Active Substance: PANTOPRAZOLE SODIUM
     Dosage: 40 MILLIGRAM, QD, (1-0-0-0, TABLETS)
     Route: 048
  12. FENOTEROL HYDROBROMIDE\IPRATROPIUM BROMIDE [Concomitant]
     Active Substance: FENOTEROL HYDROBROMIDE\IPRATROPIUM BROMIDE
     Dosage: 0.02/0.05 ?G,IF REQUIRED, METERED DOSE INHALER
  13. GLYCOPYRRONIUM\INDACATEROL [Concomitant]
     Active Substance: GLYCOPYRRONIUM\INDACATEROL
     Dosage: 50/110 MICRO G, 1-0-0-0, INHALATION CAPSULES
  14. ROFLUMILAST [Concomitant]
     Active Substance: ROFLUMILAST
     Dosage: 0.5 MILLIGRAM, QD, (1-0-0-0, TABLETS)
     Route: 048
  15. AMIODARONE [Concomitant]
     Active Substance: AMIODARONE
     Dosage: 200 MILLIGRAM, QD, (1-0-0-0, TABLETS)
     Route: 048
  16. BENSERAZIDE\LEVODOPA [Concomitant]
     Active Substance: BENSERAZIDE\LEVODOPA
     Dosage: 25|100 MG, 0-0-0-1, TABLETS
     Route: 048

REACTIONS (9)
  - Angina pectoris [Unknown]
  - General physical health deterioration [Unknown]
  - Fluid intake reduced [Unknown]
  - Weight decreased [Unknown]
  - Fatigue [Unknown]
  - Nausea [Unknown]
  - Dizziness [Unknown]
  - Constipation [Unknown]
  - Product prescribing error [Unknown]
